FAERS Safety Report 8478634-7 (Version None)
Quarter: 2012Q2

REPORT INFORMATION
  Report Type: 
  Country: None (occurrence: None)
  Receive Date: 20120629
  Receipt Date: 20120625
  Transmission Date: 20120825
  Serious: Yes (Death, Life-Threatening, Hospitalization)
  Sender: FDA-Public Use
  Company Number: US-PFIZER INC-K201000643

PATIENT
  Age: 60 Year
  Sex: Male

DRUGS (7)
  1. EMBEDA [Suspect]
     Indication: PAIN
     Dosage: 720 MG, SINGLE
     Dates: start: 20100515
  2. LORTAB [Concomitant]
     Dosage: UNK
  3. DIAZEPAM [Concomitant]
     Dosage: UNK
  4. ACETYLSALICYLIC ACID/CARISOPRODOL/CODEINE PHOSPHATE [Concomitant]
     Dosage: UNK
  5. PREGABALIN [Concomitant]
  6. AMBIEN [Concomitant]
     Dosage: UNK
  7. HYDROMORPHONE [Concomitant]
     Dosage: UNK

REACTIONS (6)
  - COMA [None]
  - SLUGGISHNESS [None]
  - CARDIO-RESPIRATORY ARREST [None]
  - INTENTIONAL OVERDOSE [None]
  - CONVULSION [None]
  - COMPLETED SUICIDE [None]
